FAERS Safety Report 4460654-0 (Version None)
Quarter: 2004Q3

REPORT INFORMATION
  Report Type: 
  Country: None (occurrence: None)
  Receive Date: 20040928
  Receipt Date: 20040713
  Transmission Date: 20050211
  Serious: No
  Sender: FDA-Public Use
  Company Number: US-GLAXOSMITHKLINE-A0518077A

PATIENT
  Age: 77 Year
  Sex: Male

DRUGS (7)
  1. ADVAIR DISKUS 100/50 [Suspect]
     Indication: ASTHMA
     Dosage: 1PUFF TWICE PER DAY
     Route: 055
  2. PREDNISONE [Concomitant]
  3. WELLBUTRIN [Concomitant]
  4. LIPITOR [Concomitant]
  5. BENICAR [Concomitant]
  6. LEVOXYL [Concomitant]
  7. FOSAMAX [Concomitant]

REACTIONS (2)
  - INSOMNIA [None]
  - PARAESTHESIA [None]
